FAERS Safety Report 5941045-X (Version None)
Quarter: 2008Q4

REPORT INFORMATION
  Report Type: 
  Country: None (occurrence: None)
  Receive Date: 20081104
  Receipt Date: 20081026
  Transmission Date: 20090506
  Serious: Yes (Other)
  Sender: FDA-Public Use
  Company Number: US-B.I. PHARMACEUTICALS,INC./RIDGEFIELD-2008-BP-16525BP

PATIENT

DRUGS (3)
  1. VIRAMUNE [Suspect]
     Indication: HIV INFECTION
     Dosage: 400MG
     Route: 048
  2. ATAZANAVIR WITH RITONAVIR [Suspect]
     Indication: HIV INFECTION
     Dosage: STRGTH: 300/100 MG
  3. TENOFOVIR DISOPROXIL FUMARATE [Concomitant]

REACTIONS (3)
  - ALCOHOL POISONING [None]
  - FALL [None]
  - SKIN LACERATION [None]
